FAERS Safety Report 7741923-5 (Version None)
Quarter: 2011Q3

REPORT INFORMATION
  Report Type: 
  Country: None (occurrence: None)
  Receive Date: 20110907
  Receipt Date: 20110907
  Transmission Date: 20111222
  Serious: Yes (Life-Threatening, Hospitalization)
  Sender: FDA-Public Use
  Company Number: None

PATIENT
  Age: 64 Year
  Sex: Male
  Weight: 92.4 kg

DRUGS (2)
  1. MORPHINE [Suspect]
     Indication: PAIN
     Dosage: 45 MG BID PO
     Route: 048
     Dates: start: 20101215, end: 20110802
  2. MORPHINE [Suspect]
     Indication: PAIN
     Dosage: 15 MG PRN PO
     Route: 048
     Dates: start: 20101219, end: 20110802

REACTIONS (5)
  - UNRESPONSIVE TO STIMULI [None]
  - HYPOTENSION [None]
  - ACCIDENTAL EXPOSURE [None]
  - CONFUSIONAL STATE [None]
  - RESPIRATORY DEPRESSION [None]
